FAERS Safety Report 24716080 (Version 3)
Quarter: 2025Q3

REPORT INFORMATION
  Report Type: Spontaneous
  Country: US (occurrence: US)
  Receive Date: 20241210
  Receipt Date: 20250816
  Transmission Date: 20251020
  Serious: No
  Sender: ALEXION PHARMACEUTICALS
  Company Number: US-AstraZeneca-CH-00763747A

PATIENT
  Sex: Female

DRUGS (2)
  1. ULTOMIRIS [Suspect]
     Active Substance: RAVULIZUMAB-CWVZ
     Indication: Paroxysmal nocturnal haemoglobinuria
  2. DANICOPAN [Suspect]
     Active Substance: DANICOPAN

REACTIONS (3)
  - Therapeutic product effect incomplete [Recovered/Resolved]
  - Feeling abnormal [Recovered/Resolved]
  - Headache [Recovered/Resolved]
